FAERS Safety Report 6345927-9 (Version None)
Quarter: 2009Q3

REPORT INFORMATION
  Report Type: 
  Country: None (occurrence: None)
  Receive Date: 20090909
  Receipt Date: 20090901
  Transmission Date: 20100115
  Serious: Yes (Hospitalization)
  Sender: FDA-Public Use
  Company Number: B0589113A

PATIENT
  Sex: Female
  Weight: 170 kg

DRUGS (3)
  1. LAPATINIB [Suspect]
     Indication: BREAST CANCER
     Route: 048
     Dates: start: 20090728, end: 20090731
  2. CYCLOPHOSPHAMIDE [Suspect]
     Indication: BREAST CANCER
     Dosage: 1116MG EVERY 3 WEEKS
     Route: 042
     Dates: start: 20090728
  3. EPIRUBICIN [Suspect]
     Indication: BREAST CANCER
     Dosage: 167.4MG EVERY 3 WEEKS
     Route: 042
     Dates: start: 20090728

REACTIONS (3)
  - NAUSEA [None]
  - PYREXIA [None]
  - VOMITING [None]
